FAERS Safety Report 6815406-0 (Version None)
Quarter: 2010Q3

REPORT INFORMATION
  Report Type: 
  Country: None (occurrence: None)
  Receive Date: 20100702
  Receipt Date: 20100624
  Transmission Date: 20110219
  Serious: Yes (Hospitalization)
  Sender: FDA-Public Use
  Company Number: US-GENZYME-POMP-1000964

PATIENT
  Sex: Male
  Weight: 32.5 kg

DRUGS (2)
  1. MYOZYME [Suspect]
     Indication: GLYCOGEN STORAGE DISEASE TYPE II
     Dosage: 20 MG/KG, QOW
     Dates: start: 20030317
  2. MYOZYME [Suspect]
     Dosage: 20 MG/KG, QW
     Dates: start: 20100501

REACTIONS (1)
  - SCOLIOSIS [None]
